FAERS Safety Report 11499914 (Version 1)
Quarter: 2015Q3

REPORT INFORMATION
  Report Type: Spontaneous
  Country: None (occurrence: None)
  Receive Date: 20150911
  Receipt Date: 20150911
  Transmission Date: 20151125
  Serious: Yes (Other)
  Sender: FDA-Public Use
  Company Number: None

PATIENT
  Age: 62 Year
  Sex: Female

DRUGS (1)
  1. TECFIDERA [Suspect]
     Active Substance: DIMETHYL FUMARATE

REACTIONS (8)
  - Urticaria [None]
  - Chest discomfort [None]
  - Lip swelling [None]
  - Throat tightness [None]
  - Blood pressure increased [None]
  - Local swelling [None]
  - Flushing [None]
  - Muscle tightness [None]

NARRATIVE: CASE EVENT DATE: 20140901
